FAERS Safety Report 5570567-9 (Version None)
Quarter: 2007Q4

REPORT INFORMATION
  Report Type: 
  Country: None (occurrence: None)
  Receive Date: 20071221
  Receipt Date: 20071204
  Transmission Date: 20080405
  Serious: Yes (Other)
  Sender: FDA-Public Use
  Company Number: US-BAYER-200715494NA

PATIENT
  Age: 81 Year
  Sex: Female

DRUGS (2)
  1. CIPROFLOXACIN HCL [Suspect]
     Indication: URINARY TRACT INFECTION
  2. REMICADE [Concomitant]
     Indication: RHEUMATOID ARTHRITIS
     Dates: start: 20070718

REACTIONS (1)
  - COLITIS [None]
